FAERS Safety Report 4954744-3 (Version None)
Quarter: 2006Q1

REPORT INFORMATION
  Report Type: 
  Country: None (occurrence: None)
  Receive Date: 20060327
  Receipt Date: 20060321
  Transmission Date: 20060701
  Serious: Yes (Death, Other)
  Sender: FDA-Public Use
  Company Number: MZ-BOEHRINGER INGELHEIM PHARMACEUTICALS, INC.-2006-DE-01479GD

PATIENT

DRUGS (6)
  1. NEVIRAPINE [Suspect]
     Indication: PROPHYLAXIS
     Route: 015
  2. NEVIRAPINE [Suspect]
     Indication: HUMAN IMMUNODEFICIENCY VIRUS TRANSMISSION
  3. LAMIVUDINE [Suspect]
     Indication: PROPHYLAXIS
     Route: 015
  4. LAMIVUDINE [Suspect]
     Indication: HUMAN IMMUNODEFICIENCY VIRUS TRANSMISSION
  5. ANTI-HIV DRUGS [Suspect]
     Indication: PROPHYLAXIS
     Route: 015
  6. ANTI-HIV DRUGS [Suspect]
     Indication: HUMAN IMMUNODEFICIENCY VIRUS TRANSMISSION

REACTIONS (4)
  - DEATH [None]
  - DRUG EXPOSURE DURING PREGNANCY [None]
  - HIV INFECTION [None]
  - MATERNAL CONDITION AFFECTING FOETUS [None]
